FAERS Safety Report 4698571-3 (Version None)
Quarter: 2005Q2

REPORT INFORMATION
  Report Type: 
  Country: None (occurrence: None)
  Receive Date: 20050622
  Receipt Date: 20050607
  Transmission Date: 20051028
  Serious: Yes (Hospitalization)
  Sender: FDA-Public Use
  Company Number: 2005001055

PATIENT
  Age: 82 Year
  Sex: Female

DRUGS (8)
  1. TARCEVA [Suspect]
     Indication: NON-SMALL CELL LUNG CANCER
     Dosage: 150 MG (QD); ORAL
     Route: 048
     Dates: start: 20050508, end: 20050527
  2. LOPRESSOR [Concomitant]
  3. VERAPAMIL [Concomitant]
  4. DIGOXIN [Concomitant]
  5. METFORMIN [Concomitant]
  6. COUMADIN [Concomitant]
  7. PROTONIX [Concomitant]
  8. REMERON [Concomitant]

REACTIONS (3)
  - DIARRHOEA [None]
  - PANCREATITIS [None]
  - URINARY TRACT INFECTION [None]
